FAERS Safety Report 6698519-6 (Version None)
Quarter: 2010Q2

REPORT INFORMATION
  Report Type: 
  Country: None (occurrence: None)
  Receive Date: 20100426
  Receipt Date: 20100426
  Transmission Date: 20101027
  Serious: Yes (Life-Threatening, Hospitalization)
  Sender: FDA-Public Use
  Company Number: None

PATIENT
  Age: 52 Year
  Sex: Male

DRUGS (2)
  1. PROPOFOL [Suspect]
     Indication: ANAESTHESIA PROCEDURE
     Dosage: 200 MG X1
     Dates: start: 20100117
  2. SUCCINYLCHOLINE [Suspect]
     Indication: ANAESTHESIA PROCEDURE
     Dosage: 100 MG X1
     Dates: start: 20100117

REACTIONS (3)
  - CATHETERISATION CARDIAC [None]
  - HYPOTENSION [None]
  - PROCEDURAL COMPLICATION [None]
